FAERS Safety Report 9297073 (Version 1)
Quarter: 2013Q2

REPORT INFORMATION
  Report Type: Spontaneous
  Country: US (occurrence: US)
  Receive Date: 20130520
  Receipt Date: 20130520
  Transmission Date: 20140414
  Serious: Yes (Hospitalization, Other)
  Sender: FDA-Public Use
  Company Number: US-BRISTOL-MYERS SQUIBB COMPANY-18876318

PATIENT
  Age: 52 Year
  Sex: Male
  Weight: 111.11 kg

DRUGS (2)
  1. ABILIFY [Suspect]
     Indication: AFFECTIVE DISORDER
     Dates: end: 201207
  2. CYMBALTA [Suspect]

REACTIONS (7)
  - Hepatic steatosis [Unknown]
  - Diabetes mellitus [Unknown]
  - Neuropathy peripheral [Unknown]
  - Encephalopathy [Unknown]
  - Meniscus injury [Unknown]
  - Weight increased [Unknown]
  - Visual impairment [Unknown]
